FAERS Safety Report 9693725 (Version 2)
Quarter: 2014Q2

REPORT INFORMATION
  Report Type: Spontaneous
  Country: US (occurrence: US)
  Receive Date: 20131118
  Receipt Date: 20140522
  Transmission Date: 20141212
  Serious: Yes (Hospitalization)
  Sender: FDA-Public Use
  Company Number: US-B.I. PHARMACEUTICALS,INC./RIDGEFIELD-2013-BI-36918BP

PATIENT
  Age: 52 Year
  Sex: Female
  Weight: 74.84 kg

DRUGS (10)
  1. PRADAXA [Suspect]
     Indication: ANTICOAGULANT THERAPY
     Route: 065
     Dates: start: 20120210, end: 20120925
  2. PLAVIX [Concomitant]
     Route: 065
     Dates: start: 2002
  3. LISINOPRIL [Concomitant]
     Route: 065
     Dates: start: 2002
  4. ERRIN [Concomitant]
     Route: 065
     Dates: start: 2012, end: 2013
  5. HYDROCHLOROTHIAZIDE [Concomitant]
     Route: 065
     Dates: start: 2002
  6. METOPROLOL [Concomitant]
     Route: 065
     Dates: start: 2002
  7. PRAVASTATIN SODIUM [Concomitant]
     Route: 065
     Dates: start: 2002
  8. ASPIRIN [Concomitant]
     Route: 065
     Dates: start: 2002
  9. NITROGLYCERIN [Concomitant]
     Route: 065
     Dates: start: 2002
  10. CLONAZEPAM [Concomitant]
     Route: 065
     Dates: start: 2012

REACTIONS (1)
  - Vaginal haemorrhage [Unknown]
